FAERS Safety Report 9848341 (Version 1)
Quarter: 2014Q1

REPORT INFORMATION
  Report Type: Spontaneous
  Country: US (occurrence: None)
  Receive Date: 20140123
  Receipt Date: 20140123
  Transmission Date: 20141002
  Serious: No
  Sender: FDA-Public Use
  Company Number: None

PATIENT
  Sex: Female

DRUGS (4)
  1. XANAX [Suspect]
     Route: 048
  2. XANAX [Suspect]
     Indication: GENERALISED ANXIETY DISORDER
     Route: 048
  3. XANAX [Suspect]
     Indication: POST-TRAUMATIC STRESS DISORDER
     Route: 048
  4. XANAX [Suspect]
     Indication: GENERALISED ANXIETY DISORDER
     Route: 048

REACTIONS (1)
  - Headache [None]
